FAERS Safety Report 4499229-6 (Version None)
Quarter: 2004Q4

REPORT INFORMATION
  Report Type: 
  Country: None (occurrence: None)
  Receive Date: 20041111
  Receipt Date: 20041102
  Transmission Date: 20050328
  Serious: Yes (Death)
  Sender: FDA-Public Use
  Company Number: GB-GLAXOSMITHKLINE-B0351135A

PATIENT
  Sex: Male

DRUGS (16)
  1. ZOFRAN [Suspect]
     Indication: DRUG WITHDRAWAL SYNDROME
     Dosage: 8MG AS REQUIRED
     Route: 048
  2. HEMINEVRIN [Suspect]
     Indication: DRUG WITHDRAWAL SYNDROME
     Route: 048
     Dates: start: 20010831
  3. OMEPRAZOLE [Suspect]
     Indication: DRUG WITHDRAWAL SYNDROME
     Dosage: 20MG PER DAY
     Route: 048
  4. CLONIDINE HCL [Suspect]
     Indication: DRUG WITHDRAWAL SYNDROME
     Dosage: .1MG AS REQUIRED
     Route: 048
  5. DIAZEPAM [Suspect]
     Indication: DRUG WITHDRAWAL SYNDROME
     Dosage: 10MG AS REQUIRED
     Route: 048
  6. LORAZEPAM [Suspect]
     Indication: DRUG WITHDRAWAL SYNDROME
     Dosage: 2.5MG AS REQUIRED
     Route: 048
  7. TEMAZEPAM [Suspect]
     Indication: DRUG WITHDRAWAL SYNDROME
     Dosage: 20MG AS REQUIRED
     Route: 048
  8. ROHYPNOL [Suspect]
     Indication: DRUG WITHDRAWAL SYNDROME
     Dosage: 1MG AS REQUIRED
     Route: 048
  9. CHLORPROMAZINE [Suspect]
     Indication: DRUG WITHDRAWAL SYNDROME
     Dosage: 50MG AS REQUIRED
     Route: 048
  10. OCTREOTIDE ACETATE [Suspect]
     Dosage: 100MCG SEE DOSAGE TEXT
     Route: 058
  11. METOCLOPRAMIDE [Suspect]
     Indication: DRUG WITHDRAWAL SYNDROME
     Dosage: 10MG SEE DOSAGE TEXT
     Route: 058
  12. PROCHLORPERAZINE MALEATE [Suspect]
     Indication: DRUG WITHDRAWAL SYNDROME
     Route: 048
  13. BUSCOPAN [Suspect]
     Indication: DRUG WITHDRAWAL SYNDROME
     Dosage: 10MG AS REQUIRED
     Route: 048
  14. NALTREXONE [Suspect]
     Indication: DRUG WITHDRAWAL SYNDROME
     Route: 048
  15. ACUPAN [Suspect]
     Indication: DRUG WITHDRAWAL SYNDROME
     Route: 048
  16. VOLTAREN [Suspect]
     Indication: DRUG WITHDRAWAL SYNDROME
     Dosage: 25MG THREE TIMES PER DAY
     Route: 048

REACTIONS (1)
  - ASPIRATION [None]
